FAERS Safety Report 15688745 (Version 1)
Quarter: 2018Q4

REPORT INFORMATION
  Report Type: Spontaneous
  Country: US (occurrence: US)
  Receive Date: 20181205
  Receipt Date: 20181205
  Transmission Date: 20190205
  Serious: No
  Sender: FDA-Public Use
  Company Number: US-AMGEN-USASP2018170363

PATIENT
  Age: 88 Year
  Sex: Female

DRUGS (4)
  1. SENSIPAR [Suspect]
     Active Substance: CINACALCET HYDROCHLORIDE
     Dosage: 120 MG, QD
     Route: 065
     Dates: start: 2018
  2. SENSIPAR [Suspect]
     Active Substance: CINACALCET HYDROCHLORIDE
     Dosage: 180 MG, QD
     Route: 065
     Dates: start: 201811
  3. SENSIPAR [Suspect]
     Active Substance: CINACALCET HYDROCHLORIDE
     Dosage: UNK
     Route: 065
  4. SENSIPAR [Suspect]
     Active Substance: CINACALCET HYDROCHLORIDE
     Indication: HYPERPARATHYROIDISM
     Dosage: 60 MG, QD
     Route: 065
     Dates: start: 201806

REACTIONS (7)
  - Retching [Unknown]
  - Secretion discharge [Unknown]
  - Nausea [Unknown]
  - Weight decreased [Unknown]
  - Dysgeusia [Unknown]
  - Drug effect incomplete [Unknown]
  - Decreased appetite [Unknown]

NARRATIVE: CASE EVENT DATE: 2018
